FAERS Safety Report 18229121 (Version 2)
Quarter: 2020Q4

REPORT INFORMATION
  Report Type: Spontaneous
  Country: US (occurrence: US)
  Receive Date: 20200903
  Receipt Date: 20201228
  Transmission Date: 20210113
  Serious: Yes (Other)
  Sender: FDA-Public Use
  Company Number: US-GILEAD-2020-0492690

PATIENT
  Age: 61 Year
  Sex: Male

DRUGS (2)
  1. DESCOVY [Concomitant]
     Active Substance: EMTRICITABINE\TENOFOVIR ALAFENAMIDE FUMARATE
  2. ATRIPLA [Suspect]
     Active Substance: EFAVIRENZ\EMTRICITABINE\TENOFOVIR DISOPROXIL FUMARATE
     Indication: HIV INFECTION
     Dosage: UNK
     Route: 048
     Dates: start: 20080122, end: 20160622

REACTIONS (8)
  - Osteoporosis [Not Recovered/Not Resolved]
  - Scapula fracture [Not Recovered/Not Resolved]
  - Anxiety [Unknown]
  - Chronic kidney disease [Not Recovered/Not Resolved]
  - Pain [Unknown]
  - Femur fracture [Not Recovered/Not Resolved]
  - Emotional distress [Unknown]
  - Anhedonia [Unknown]

NARRATIVE: CASE EVENT DATE: 20110531
